FAERS Safety Report 9703294 (Version 1)
Quarter: 2013Q4

REPORT INFORMATION
  Report Type: Spontaneous
  Country: BR (occurrence: BR)
  Receive Date: 20131122
  Receipt Date: 20131122
  Transmission Date: 20140711
  Serious: Yes (Other)
  Sender: FDA-Public Use
  Company Number: BR-ACCORD-020362

PATIENT
  Age: 58 Year
  Sex: Female
  Weight: 76.4 kg

DRUGS (6)
  1. HYDROCHLOROTHIAZIDE [Concomitant]
  2. DEXAMETHASONE [Concomitant]
     Route: 042
     Dates: start: 20131022, end: 20131022
  3. RANITIDINE [Concomitant]
     Route: 042
     Dates: start: 20131022, end: 20131022
  4. PACLITAXEL [Suspect]
     Indication: BREAST CANCER
     Route: 042
     Dates: start: 20131022, end: 20131022
  5. DIFENIDRIN [Concomitant]
     Route: 042
     Dates: start: 20131022, end: 20131022
  6. NAUSETRON [Concomitant]
     Route: 042
     Dates: start: 20131022, end: 20131022

REACTIONS (3)
  - Erythema [Recovered/Resolved]
  - Hypertension [Recovered/Resolved]
  - Chest pain [Recovered/Resolved]
